FAERS Safety Report 11164108 (Version 1)
Quarter: 2015Q2

REPORT INFORMATION
  Report Type: Spontaneous
  Country: US (occurrence: US)
  Receive Date: 20150604
  Receipt Date: 20150604
  Transmission Date: 20150821
  Serious: No
  Sender: FDA-Public Use
  Company Number: US-TARO-2014TAR00575

PATIENT
  Age: 1 Year
  Sex: Male
  Weight: 13.61 kg

DRUGS (5)
  1. CAPTOPRIL. [Concomitant]
     Active Substance: CAPTOPRIL
  2. FEVERALL CHILDRENS [Suspect]
     Active Substance: ACETAMINOPHEN
     Dosage: UNK
     Route: 054
  3. DIGOXIN. [Concomitant]
     Active Substance: DIGOXIN
  4. FEVERALL CHILDRENS [Suspect]
     Active Substance: ACETAMINOPHEN
     Indication: PYREXIA
     Dosage: 120 MG, AS NEEDED
     Route: 054
     Dates: start: 20141118, end: 20141119
  5. LASIX [Concomitant]
     Active Substance: FUROSEMIDE

REACTIONS (2)
  - Drug effect incomplete [Recovered/Resolved]
  - Croup infectious [Unknown]

NARRATIVE: CASE EVENT DATE: 20141119
